FAERS Safety Report 22170707 (Version 15)
Quarter: 2023Q4

REPORT INFORMATION
  Report Type: Report from Study
  Country: CL (occurrence: CL)
  Receive Date: 20230404
  Receipt Date: 20231206
  Transmission Date: 20240110
  Serious: Yes (Hospitalization, Other)
  Sender: FDA-Public Use
  Company Number: CL-TAKEDA-2022TUS051223

PATIENT
  Age: 1 Year
  Sex: Male
  Weight: 18 kg

DRUGS (8)
  1. IDURSULFASE [Suspect]
     Active Substance: IDURSULFASE
     Indication: Mucopolysaccharidosis II
     Dosage: 0.5 MILLIGRAM, 1/WEEK
     Route: 042
  2. IDURSULFASE [Suspect]
     Active Substance: IDURSULFASE
     Indication: Enzyme supplementation
     Dosage: 0.5 MILLIGRAM, 1/WEEK
     Route: 042
  3. IDURSULFASE [Suspect]
     Active Substance: IDURSULFASE
     Dosage: 0.5 MILLIGRAM, 1/WEEK
     Route: 042
  4. IDURSULFASE [Suspect]
     Active Substance: IDURSULFASE
     Dosage: UNK UNK, QD
     Route: 042
  5. IDURSULFASE [Suspect]
     Active Substance: IDURSULFASE
     Dosage: UNK
     Route: 065
  6. IDURSULFASE [Suspect]
     Active Substance: IDURSULFASE
     Dosage: UNK
     Route: 065
  7. IDURSULFASE [Suspect]
     Active Substance: IDURSULFASE
     Dosage: UNK UNK, 1/WEEK
     Route: 042
  8. IDURSULFASE [Suspect]
     Active Substance: IDURSULFASE
     Dosage: UNK UNK, 1/WEEK
     Route: 042

REACTIONS (34)
  - Catheter site extravasation [Recovering/Resolving]
  - Complication associated with device [Unknown]
  - Respiratory distress [Recovering/Resolving]
  - Bronchitis [Recovered/Resolved]
  - Rhinitis [Recovering/Resolving]
  - Nasopharyngitis [Recovering/Resolving]
  - Lip injury [Recovering/Resolving]
  - Blister [Recovering/Resolving]
  - Irritability [Recovered/Resolved]
  - Hand-foot-and-mouth disease [Recovering/Resolving]
  - Rhinorrhoea [Unknown]
  - Limb injury [Recovered/Resolved]
  - Skin infection [Recovered/Resolved]
  - Pharyngitis [Recovering/Resolving]
  - Respiratory disorder [Recovered/Resolved]
  - Respiratory symptom [Unknown]
  - Catheter site swelling [Recovered/Resolved]
  - Viral infection [Recovering/Resolving]
  - Oxygen saturation decreased [Recovered/Resolved]
  - Depression [Unknown]
  - Restlessness [Unknown]
  - Infusion site pain [Unknown]
  - Poor venous access [Unknown]
  - Discouragement [Recovered/Resolved]
  - Obstruction [Recovered/Resolved]
  - Pain [Unknown]
  - Diarrhoea [Recovering/Resolving]
  - Cough [Recovering/Resolving]
  - Vomiting [Recovered/Resolved]
  - Infusion site swelling [Recovered/Resolved]
  - Erythema [Recovered/Resolved]
  - Pyrexia [Recovered/Resolved]
  - Tachypnoea [Recovered/Resolved]
  - Device issue [Unknown]

NARRATIVE: CASE EVENT DATE: 20220724
